FAERS Safety Report 4955704-9 (Version None)
Quarter: 2006Q1

REPORT INFORMATION
  Report Type: 
  Country: None (occurrence: None)
  Receive Date: 20060328
  Receipt Date: 20060322
  Transmission Date: 20060701
  Serious: Yes (Other)
  Sender: FDA-Public Use
  Company Number: FI-AVENTIS-200612861GDDC

PATIENT
  Age: 22 Year
  Sex: Female

DRUGS (3)
  1. FLAGYL [Suspect]
     Indication: VAGINITIS BACTERIAL
     Route: 048
     Dates: start: 20060131, end: 20060206
  2. FLAGYL [Suspect]
     Route: 048
     Dates: start: 20060216, end: 20060222
  3. HARMONET [Concomitant]
     Indication: CONTRACEPTION
     Dosage: DOSE: 75UG/20UG
     Route: 048
     Dates: start: 20050901

REACTIONS (1)
  - CLOSTRIDIUM COLITIS [None]
